FAERS Safety Report 17256858 (Version 1)
Quarter: 2020Q1

REPORT INFORMATION
  Report Type: Report from Study
  Country: RO (occurrence: RO)
  Receive Date: 20200110
  Receipt Date: 20200110
  Transmission Date: 20200409
  Serious: Yes (Other)
  Sender: FDA-Public Use
  Company Number: RO-GILEAD-2019-0440438

PATIENT
  Age: 77 Year
  Sex: Female

DRUGS (10)
  1. LEDIPASVIR/SOFOSBUVIR [Suspect]
     Active Substance: LEDIPASVIR\SOFOSBUVIR
     Indication: HEPATITIS C
     Dosage: 1 DOSAGE FORM, QD
     Route: 048
     Dates: start: 20190620, end: 20190911
  2. BROMAZEPAM [Concomitant]
     Active Substance: BROMAZEPAM
  3. SINTROM [Concomitant]
     Active Substance: ACENOCOUMAROL
  4. ATACAND [Concomitant]
     Active Substance: CANDESARTAN CILEXETIL
  5. CALCIU LACTIC [Concomitant]
  6. OMEGA 3 [FISH OIL] [Concomitant]
     Active Substance: FISH OIL
  7. LEDIPASVIR/SOFOSBUVIR [Suspect]
     Active Substance: LEDIPASVIR\SOFOSBUVIR
     Indication: HEPATIC CIRRHOSIS
  8. BETALOC [METOPROLOL TARTRATE] [Concomitant]
     Active Substance: METOPROLOL TARTRATE
  9. ALPHA D3 [Concomitant]
     Active Substance: ALFACALCIDOL
  10. ESSENTIALE FORTE [Concomitant]

REACTIONS (8)
  - Enterocolitis [Not Recovered/Not Resolved]
  - Pyrexia [Recovered/Resolved]
  - Mucous stools [Not Recovered/Not Resolved]
  - Pain [Recovering/Resolving]
  - Nasopharyngitis [Recovering/Resolving]
  - Rhinorrhoea [Recovering/Resolving]
  - Headache [Recovering/Resolving]
  - Cough [Recovering/Resolving]

NARRATIVE: CASE EVENT DATE: 20191123
